FAERS Safety Report 14196008 (Version 1)
Quarter: 2017Q4

REPORT INFORMATION
  Report Type: Spontaneous
  Country: US (occurrence: None)
  Receive Date: 20171116
  Receipt Date: 20171116
  Transmission Date: 20180321
  Serious: Yes (Hospitalization)
  Sender: FDA-Public Use
  Company Number: None

PATIENT
  Age: 70 Year
  Sex: Female
  Weight: 64.12 kg

DRUGS (4)
  1. RADIATION THERAPY [Concomitant]
     Active Substance: RADIATION THERAPY
  2. BEVACIZUMAB. [Concomitant]
     Active Substance: BEVACIZUMAB
  3. TEMOZOLOMIDE. [Suspect]
     Active Substance: TEMOZOLOMIDE
     Indication: GLIOBLASTOMA MULTIFORME
     Dosage: 250MG DAILYX5 DOSES/28D ORAL
     Route: 048
     Dates: start: 20161205, end: 20161209
  4. OPTUNE DEVICE [Concomitant]

REACTIONS (1)
  - Pneumonia [None]

NARRATIVE: CASE EVENT DATE: 20161211
